FAERS Safety Report 5264793-6 (Version None)
Quarter: 2007Q1

REPORT INFORMATION
  Report Type: 
  Country: None (occurrence: None)
  Receive Date: 20061124
  Receipt Date: 20050204
  Transmission Date: 20070707
  Serious: Yes (Hospitalization)
  Sender: FDA-Public Use
  Company Number: 2005UW02028

PATIENT
  Age: 65 Year
  Sex: Female

DRUGS (8)
  1. ATENOLOL [Suspect]
     Indication: BLOOD PRESSURE INCREASED
  2. METOPROLOL SUCCINATE [Suspect]
     Indication: BLOOD PRESSURE INCREASED
  3. LOTENSIN [Suspect]
     Indication: BLOOD PRESSURE INCREASED
     Dates: start: 20020101, end: 20020101
  4. CARDIZEM [Concomitant]
  5. LOTREL [Concomitant]
  6. DILTIAZEM [Concomitant]
  7. LEVOTHYROXINE SODIUM [Concomitant]
  8. PRAVASTATIN SODIUM [Concomitant]

REACTIONS (3)
  - ARRHYTHMIA [None]
  - SWELLING FACE [None]
  - TONGUE BLISTERING [None]
